FAERS Safety Report 6028853-4 (Version None)
Quarter: 2008Q4

REPORT INFORMATION
  Report Type: 
  Country: None (occurrence: None)
  Receive Date: 20081231
  Receipt Date: 20081222
  Transmission Date: 20090506
  Serious: Yes (Other)
  Sender: FDA-Public Use
  Company Number: 2008EN000193

PATIENT
  Sex: Male

DRUGS (1)
  1. ABELCET [Suspect]
     Indication: FUNGAL INFECTION
     Dosage: 500 MG; QD; IV
     Route: 042
     Dates: start: 20080101

REACTIONS (6)
  - CHILLS [None]
  - FEELING COLD [None]
  - HYPERTENSION [None]
  - RASH [None]
  - TACHYCARDIA [None]
  - TACHYPNOEA [None]
